FAERS Safety Report 25001580 (Version 1)
Quarter: 2025Q1

REPORT INFORMATION
  Report Type: Spontaneous
  Country: CN (occurrence: CN)
  Receive Date: 20250223
  Receipt Date: 20250223
  Transmission Date: 20250408
  Serious: Yes (Hospitalization)
  Sender: ABBVIE
  Company Number: CN-ABBVIE-6139977

PATIENT
  Age: 33 Year
  Sex: Female
  Weight: 48 kg

DRUGS (3)
  1. LOPINAVIR\RITONAVIR [Suspect]
     Active Substance: LOPINAVIR\RITONAVIR
     Indication: Prophylaxis
     Dosage: 4 TABLET? LOPINAVIR/RITONAVIR TABLETS 2 TABLETS BID
     Route: 048
     Dates: start: 20250202, end: 20250218
  2. TENOFOVIR DISOPROXIL FUMARATE [Concomitant]
     Active Substance: TENOFOVIR DISOPROXIL FUMARATE
     Indication: Prophylaxis
     Dosage: 0.3 GRAM?300 MG QD
     Route: 048
     Dates: start: 20250202, end: 20250218
  3. LAMIVUDINE [Concomitant]
     Active Substance: LAMIVUDINE
     Indication: Prophylaxis
     Dosage: 0.3 GRAM?300 MG QD
     Route: 048
     Dates: start: 20250202, end: 20250218

REACTIONS (10)
  - Frequent bowel movements [Recovering/Resolving]
  - Palpitations [Unknown]
  - Nausea [Unknown]
  - Fatigue [Recovering/Resolving]
  - Diarrhoea [Recovering/Resolving]
  - Abdominal distension [Unknown]
  - Abdominal pain [Unknown]
  - Apathy [Recovering/Resolving]
  - Weight decreased [Unknown]
  - Enteritis [Unknown]

NARRATIVE: CASE EVENT DATE: 20250201
